FAERS Safety Report 14171008 (Version 1)
Quarter: 2017Q4

REPORT INFORMATION
  Report Type: Spontaneous
  Country: US (occurrence: US)
  Receive Date: 20171108
  Receipt Date: 20171108
  Transmission Date: 20180321
  Serious: No
  Sender: FDA-Public Use
  Company Number: US-BAYER-2017-212561

PATIENT
  Age: 88 Year
  Sex: Male
  Weight: 84 kg

DRUGS (10)
  1. CLARITIN LIQUI-GELS [Suspect]
     Active Substance: LORATADINE
     Dosage: 1 DF, QD
     Route: 048
     Dates: start: 20171030, end: 20171031
  2. MULTIVITAMIN [Concomitant]
     Active Substance: VITAMINS
  3. BAYER LOW DOSE [Concomitant]
     Active Substance: ASPIRIN
     Dosage: 1 DF, QD
  4. RESTASIS [Concomitant]
     Active Substance: CYCLOSPORINE
  5. HYDROCODONE [Concomitant]
     Active Substance: HYDROCODONE
  6. COUMADIN [Concomitant]
     Active Substance: WARFARIN SODIUM
     Dosage: UNK
  7. TIMOLOL. [Concomitant]
     Active Substance: TIMOLOL
  8. LATANOPROST. [Concomitant]
     Active Substance: LATANOPROST
  9. PRAVACHOL [Concomitant]
     Active Substance: PRAVASTATIN SODIUM
     Dosage: UNK
  10. VALIUM [Concomitant]
     Active Substance: DIAZEPAM

REACTIONS (2)
  - Mobility decreased [Recovered/Resolved]
  - Fatigue [Recovered/Resolved]

NARRATIVE: CASE EVENT DATE: 20171101
